FAERS Safety Report 9131019 (Version 2)
Quarter: 2013Q1

REPORT INFORMATION
  Report Type: Spontaneous
  Country: FR (occurrence: FR)
  Receive Date: 20130301
  Receipt Date: 20130307
  Transmission Date: 20140127
  Serious: Yes (Hospitalization, Other)
  Sender: FDA-Public Use
  Company Number: FR-PFIZER INC-2013070583

PATIENT
  Age: 40 Year
  Sex: Female

DRUGS (8)
  1. ATARAX [Suspect]
     Dosage: UNK
     Route: 048
     Dates: start: 20121116, end: 20121120
  2. ALPRAZOLAM [Suspect]
     Indication: ANXIETY
     Dosage: 0.5 DF, 4X/DAY
     Route: 048
     Dates: start: 20120727
  3. MIRTAZAPINE [Suspect]
     Indication: DEPRESSION
     Dosage: 15 MG, 3X/DAY
     Route: 048
     Dates: start: 20120630
  4. TEGRETOL [Suspect]
     Dosage: 200 MG DAILY
     Route: 048
     Dates: start: 20121119, end: 20121203
  5. LYSANXIA [Suspect]
     Indication: ANXIETY
     Dosage: UNK
     Route: 048
     Dates: end: 20121108
  6. LEVOTHYROX [Suspect]
     Indication: HYPOTHYROIDISM
     Dosage: 100 UG DAILY
     Route: 048
     Dates: start: 201107
  7. ZOPICLONE [Concomitant]
     Dosage: 7.5 MG DAILY
     Route: 048
     Dates: start: 20120630
  8. TERCIAN [Concomitant]
     Indication: ANXIETY
     Dosage: 25 MG X 3 + 100 MG DAILY
     Route: 048
     Dates: start: 20121109

REACTIONS (1)
  - Cholestasis [Not Recovered/Not Resolved]
